FAERS Safety Report 7946676-3 (Version None)
Quarter: 2011Q4

REPORT INFORMATION
  Report Type: 
  Country: None (occurrence: None)
  Receive Date: 20111129
  Receipt Date: 20111121
  Transmission Date: 20120403
  Serious: Yes (Other)
  Sender: FDA-Public Use
  Company Number: CHPA2011US016554

PATIENT
  Age: 53 Year
  Sex: Female

DRUGS (11)
  1. ZITHROMAX [Concomitant]
     Indication: BRONCHITIS
     Dosage: UNK, UNK
  2. TRAZODONE HCL [Concomitant]
     Dosage: 50 MG, PRN
     Route: 048
     Dates: start: 20111001
  3. GAS-X CHEWABLE TABLETS CHERRY CREME [Suspect]
     Indication: FLATULENCE
     Dosage: 160 MG, QHS
     Route: 048
     Dates: start: 20101101, end: 20111120
  4. TRAZODONE HCL [Concomitant]
     Indication: INSOMNIA
     Dosage: 100 MG, PRN
     Route: 048
     Dates: start: 20111001
  5. PROTONIX [Concomitant]
     Indication: GASTROOESOPHAGEAL REFLUX DISEASE
     Dosage: 40 MG, QD
     Route: 048
     Dates: start: 20110401
  6. FISH OIL [Concomitant]
     Dosage: UNK, QD
     Route: 048
  7. ATIVAN [Concomitant]
     Indication: FEELING OF RELAXATION
     Dosage: 2 MG, TID
     Route: 048
     Dates: start: 20111001
  8. MOBIC [Concomitant]
     Indication: OSTEOARTHRITIS
     Dosage: 7.5 MG, QD
  9. MULTI-VITAMINS [Concomitant]
     Dosage: UNK, UNK
  10. ZYPREXA [Concomitant]
     Indication: SCHIZOAFFECTIVE DISORDER
     Dosage: UNK,  UNK
  11. PROZAC [Concomitant]
     Indication: MENTAL DISORDER
     Dosage: 100 MG, UNK
     Route: 048

REACTIONS (11)
  - INSOMNIA [None]
  - GASTROOESOPHAGEAL REFLUX DISEASE [None]
  - DRY THROAT [None]
  - BRONCHITIS [None]
  - SCHIZOAFFECTIVE DISORDER [None]
  - THERAPEUTIC RESPONSE DECREASED [None]
  - NAUSEA [None]
  - INCONTINENCE [None]
  - DRY MOUTH [None]
  - ABDOMINAL DISCOMFORT [None]
  - VOMITING [None]
